FAERS Safety Report 11209230 (Version 1)
Quarter: 2015Q2

REPORT INFORMATION
  Report Type: Spontaneous
  Country: US (occurrence: US)
  Receive Date: 20150622
  Receipt Date: 20150622
  Transmission Date: 20150821
  Serious: Yes (Hospitalization, Other)
  Sender: FDA-Public Use
  Company Number: US-SA-2015SA085680

PATIENT
  Age: 68 Year
  Sex: Male

DRUGS (5)
  1. LASIX [Suspect]
     Active Substance: FUROSEMIDE
     Indication: FLUID RETENTION
     Route: 048
     Dates: start: 20150530
  2. LASIX [Suspect]
     Active Substance: FUROSEMIDE
     Indication: FLUID RETENTION
     Route: 042
     Dates: start: 20150531
  3. POTASSIUM [Concomitant]
     Active Substance: POTASSIUM
     Dates: start: 20150530
  4. ELIQUIS [Concomitant]
     Active Substance: APIXABAN
     Indication: ANTICOAGULANT THERAPY
     Dates: start: 2015
  5. MULTAQ [Concomitant]
     Active Substance: DRONEDARONE
     Indication: ATRIAL FIBRILLATION
     Dates: start: 20150528, end: 20150608

REACTIONS (9)
  - Head discomfort [Recovered/Resolved]
  - Musculoskeletal stiffness [Recovering/Resolving]
  - Fluid retention [Unknown]
  - Cardiac failure congestive [Unknown]
  - Migraine [Recovered/Resolved]
  - Drug ineffective [Unknown]
  - Headache [Recovered/Resolved]
  - Abasia [Unknown]
  - Photophobia [Unknown]

NARRATIVE: CASE EVENT DATE: 20150531
